FAERS Safety Report 18853645 (Version 3)
Quarter: 2021Q1

REPORT INFORMATION
  Report Type: Spontaneous
  Country: US (occurrence: US)
  Receive Date: 20210205
  Receipt Date: 20210316
  Transmission Date: 20210420
  Serious: No
  Sender: FDA-Public Use
  Company Number: US-KYOWAKIRIN-2021BKK001649

PATIENT

DRUGS (2)
  1. CRYSVITA [Suspect]
     Active Substance: BUROSUMAB-TWZA
     Dosage: 0.35 MG/KG (8.5 MG), 1X/2 WEEKS
     Route: 058
     Dates: start: 20210128
  2. CRYSVITA [Suspect]
     Active Substance: BUROSUMAB-TWZA
     Indication: HEREDITARY HYPOPHOSPHATAEMIC RICKETS
     Dosage: 0.365 MG/KG (8 MG), 1X/2 WEEKS
     Route: 058
     Dates: start: 20201009, end: 202101

REACTIONS (1)
  - Intentional underdose [Not Recovered/Not Resolved]

NARRATIVE: CASE EVENT DATE: 20201009
